FAERS Safety Report 11217780 (Version 1)
Quarter: 2015Q2

REPORT INFORMATION
  Report Type: Spontaneous
  Country: IL (occurrence: IL)
  Receive Date: 20150625
  Receipt Date: 20150625
  Transmission Date: 20150821
  Serious: Yes (Hospitalization, Other)
  Sender: FDA-Public Use
  Company Number: IL-JNJFOC-20150502605

PATIENT
  Sex: Female

DRUGS (1)
  1. SIMPONI [Suspect]
     Active Substance: GOLIMUMAB
     Indication: RHEUMATOID ARTHRITIS
     Route: 058
     Dates: start: 20150412, end: 20150614

REACTIONS (7)
  - Hypertension [Not Recovered/Not Resolved]
  - Pneumonia [Recovering/Resolving]
  - Urinary tract infection [Not Recovered/Not Resolved]
  - Wound infection [Not Recovered/Not Resolved]
  - Arthritis infective [Not Recovered/Not Resolved]
  - Pruritus [Not Recovered/Not Resolved]
  - Dizziness [Not Recovered/Not Resolved]
